FAERS Safety Report 10350896 (Version 2)
Quarter: 2016Q3

REPORT INFORMATION
  Report Type: Spontaneous
  Country: US (occurrence: US)
  Receive Date: 20140730
  Receipt Date: 20160712
  Transmission Date: 20161109
  Serious: No
  Sender: FDA-Public Use
  Company Number: US-PFIZER INC-2014209723

PATIENT
  Age: 58 Year
  Sex: Female
  Weight: 48.98 kg

DRUGS (18)
  1. GOODYS [Concomitant]
     Active Substance: ACETAMINOPHEN\ASPIRIN\CAFFEINE
     Dosage: UNK (ACETYLSALICYLIC ACID: 260 MG, CAFFEINE: 16.25MG, PARACETAMOL: 130 MG)
     Route: 048
  2. RANITIDINE HCL [Concomitant]
     Active Substance: RANITIDINE HYDROCHLORIDE
     Dosage: 300 MG, 1X/DAY (1 CAPSULE AT BEDTIME)
     Route: 048
  3. PRILOSEC [Concomitant]
     Active Substance: OMEPRAZOLE MAGNESIUM
     Dosage: 20 MG, 1X/DAY
     Route: 048
  4. LYRICA [Suspect]
     Active Substance: PREGABALIN
     Indication: FIBROMYALGIA
     Dosage: 150 MG, 2X/DAY
     Route: 048
  5. TRAMADOL HCL [Concomitant]
     Active Substance: TRAMADOL HYDROCHLORIDE
     Dosage: 50 MG, AS NEEDED (1 TABLET AS NEEDED ORALLY Q 12 HRS)
     Route: 048
  6. FERROUS SULFATE. [Concomitant]
     Active Substance: FERROUS SULFATE
     Dosage: 325 MG, 1X/DAY
     Route: 048
  7. SYNTHROID [Concomitant]
     Active Substance: LEVOTHYROXINE SODIUM
     Indication: THYROID DISORDER
     Dosage: 88 MG, DAILY
  8. TRIPLE ANTIBIOTIC [Concomitant]
     Active Substance: BACITRACIN ZINC\NEOMYCIN\NEOMYCIN SULFATE\POLYMYXIN B SULFATE
     Dosage: UNK, 1X/DAY
     Route: 061
  9. LEVOTHYROXINE SODIUM. [Concomitant]
     Active Substance: LEVOTHYROXINE SODIUM
     Dosage: 88 UG, 1X/DAY (1 TABLET EVERY MORNING ON AN EMPTY STOMACH ORALLY ONCE A DAY)
     Route: 048
  10. LYRICA [Suspect]
     Active Substance: PREGABALIN
     Dosage: 75 MG, 2X/DAY
     Dates: start: 2014, end: 2014
  11. OMEPRAZOLE. [Concomitant]
     Active Substance: OMEPRAZOLE
     Dosage: 40 MG, 1X/DAY (2 CAPSULE ORALLY)
     Route: 048
  12. CHANTIX [Concomitant]
     Active Substance: VARENICLINE TARTRATE
     Dosage: 1 MG, 1X/DAY
     Route: 048
  13. CYCLOBENZAPRINE HCL [Concomitant]
     Active Substance: CYCLOBENZAPRINE HYDROCHLORIDE
     Dosage: 10 MG, AS NEEDED (1 TABLET ORALLY BID PRN)
     Route: 048
  14. LYRICA [Suspect]
     Active Substance: PREGABALIN
     Dosage: 75 MG, 4X/DAY
     Dates: start: 2014, end: 201407
  15. MUPIROCIN. [Concomitant]
     Active Substance: MUPIROCIN
     Dosage: 2 %, 3X/DAY (APPLICATION TO AFFECTED AREA ON LEFT LEG EXTERNALLY THREE TIMES A DAY)
     Route: 061
     Dates: start: 20160627
  16. BACTRIM DS [Concomitant]
     Active Substance: SULFAMETHOXAZOLE\TRIMETHOPRIM
     Dosage: 2 DF, 2X/DAY (SULFAMETHOXAZOLE:800 MG, TRIMETHOPRIM:160MG)
     Route: 048
     Dates: start: 20160627
  17. LOVASTATIN. [Concomitant]
     Active Substance: LOVASTATIN
     Dosage: 20 MG, 1X/DAY (1 TABLET WITH A MEAL)
     Route: 048
  18. BUSPIRONE HCL [Concomitant]
     Active Substance: BUSPIRONE HYDROCHLORIDE
     Dosage: 10 MG, 2X/DAY
     Route: 048

REACTIONS (4)
  - Depression [Unknown]
  - Withdrawal syndrome [Unknown]
  - Pain [Unknown]
  - Malaise [Unknown]

NARRATIVE: CASE EVENT DATE: 201407
